FAERS Safety Report 13074908 (Version 2)
Quarter: 2017Q1

REPORT INFORMATION
  Report Type: Spontaneous
  Country: US (occurrence: US)
  Receive Date: 20161230
  Receipt Date: 20170131
  Transmission Date: 20170428
  Serious: No
  Sender: FDA-Public Use
  Company Number: US-PFIZER INC-2016540475

PATIENT
  Age: 57 Year
  Sex: Male

DRUGS (6)
  1. LISINOPRIL AND HYDROCHLOROTHIAZIDE [Concomitant]
     Active Substance: HYDROCHLOROTHIAZIDE\LISINOPRIL
     Dosage: 1 DF, DAILY [HYDROCHLOROTHIAZIDE-12.5 MG]/[LISINOPRIL-20 MG]
     Route: 048
     Dates: start: 20091019
  2. LYRICA [Suspect]
     Active Substance: PREGABALIN
     Indication: PAIN
     Dosage: 150 MG, 3X/DAY
     Route: 048
     Dates: start: 20150513
  3. TRICOR [Concomitant]
     Active Substance: FENOFIBRATE
     Dosage: 145 MG, DAILY
     Route: 048
     Dates: start: 20140415
  4. VOLTAREN [Concomitant]
     Active Substance: DICLOFENAC SODIUM
     Dosage: UNK, 1X/DAY
     Route: 061
     Dates: start: 20110411
  5. HYDROCODONE/ACETAMINOPHEN [Concomitant]
     Active Substance: ACETAMINOPHEN\HYDROCODONE
     Dosage: UNK [HYDROCODONE BITARTRATE-10 MG]/[PARACETAMOL-325 MG] (1-2 TABLETS BY MOUTH EVERY 4-6 HOURS)
     Route: 048
     Dates: start: 20090506
  6. CYCLOBENZAPRINE HCL [Concomitant]
     Active Substance: CYCLOBENZAPRINE HYDROCHLORIDE
     Dosage: 10 MG, AS NEEDED (THREE TIMES DAILY)
     Route: 048
     Dates: start: 20160405

REACTIONS (2)
  - Withdrawal syndrome [Unknown]
  - Drug dose omission [Unknown]
